FAERS Safety Report 4374214-3 (Version None)
Quarter: 2004Q2

REPORT INFORMATION
  Report Type: 
  Country: None (occurrence: None)
  Receive Date: 20040603
  Receipt Date: 20040526
  Transmission Date: 20050107
  Serious: Yes (Death, Hospitalization)
  Sender: FDA-Public Use
  Company Number: 2004-05-1969

PATIENT
  Age: 31 Year
  Sex: Female

DRUGS (6)
  1. PEG-INTERFERON ALFA-2B INJECTABLE POWDER [Suspect]
     Indication: HEPATITIS C
     Dosage: SUBCUTANEOUS
     Route: 058
     Dates: start: 20040428, end: 20040505
  2. RIBAVIRIN [Suspect]
     Indication: HEPATITIS C
     Dosage: 1000 MG QD ORAL
     Route: 048
     Dates: start: 20040428, end: 20040505
  3. EFFEXOR [Concomitant]
  4. RESTORIL [Concomitant]
  5. VENTOLIN [Concomitant]
  6. FLOVENT [Concomitant]

REACTIONS (2)
  - FALL [None]
  - INFLUENZA LIKE ILLNESS [None]
